FAERS Safety Report 5257656-3 (Version None)
Quarter: 2007Q1

REPORT INFORMATION
  Report Type: 
  Country: None (occurrence: None)
  Receive Date: 20070307
  Receipt Date: 20070228
  Transmission Date: 20070707
  Serious: Yes (Death, Hospitalization)
  Sender: FDA-Public Use
  Company Number: FR-SANOFI-SYNTHELABO-A02200603061

PATIENT
  Age: 78 Year
  Sex: Male
  Weight: 62 kg

DRUGS (6)
  1. ZOCOR [Concomitant]
     Indication: DRUG USE FOR UNKNOWN INDICATION
     Dosage: UNK
     Route: 048
     Dates: start: 20020101
  2. PARIET [Concomitant]
     Indication: DRUG USE FOR UNKNOWN INDICATION
     Dosage: UNK
     Route: 048
     Dates: start: 20020101
  3. AMIODARONE HCL [Concomitant]
     Indication: DRUG USE FOR UNKNOWN INDICATION
     Route: 048
     Dates: start: 20020101
  4. ATACAND [Concomitant]
     Indication: DRUG USE FOR UNKNOWN INDICATION
     Dosage: 16 MG
     Route: 048
     Dates: start: 20020101
  5. FUROSEMIDE [Concomitant]
     Indication: DRUG USE FOR UNKNOWN INDICATION
     Route: 065
     Dates: start: 20020101
  6. PLAVIX [Suspect]
     Indication: HEART VALVE REPLACEMENT
     Route: 048
     Dates: start: 20020101, end: 20061101

REACTIONS (7)
  - ANOREXIA [None]
  - EOSINOPHIL COUNT INCREASED [None]
  - FATIGUE [None]
  - OCULAR ICTERUS [None]
  - OEDEMA PERIPHERAL [None]
  - PANCYTOPENIA [None]
  - WEIGHT DECREASED [None]
